FAERS Safety Report 9009779 (Version 1)
Quarter: 2013Q1

REPORT INFORMATION
  Report Type: Spontaneous
  Country: US (occurrence: US)
  Receive Date: 20130110
  Receipt Date: 20130110
  Transmission Date: 20140127
  Serious: Yes (Death)
  Sender: FDA-Public Use
  Company Number: US-PFIZER INC-2013005725

PATIENT
  Age: 47 Year
  Sex: Male

DRUGS (4)
  1. AMLODIPINE BESILATE [Suspect]
     Dosage: UNK
     Route: 048
  2. LISINOPRIL [Suspect]
     Dosage: UNK
     Route: 048
  3. SALICYLATES [Suspect]
     Dosage: UNK
     Route: 048
  4. METFORMIN [Suspect]
     Dosage: UNK
     Route: 048

REACTIONS (1)
  - Completed suicide [Fatal]
